FAERS Safety Report 5494281-3 (Version None)
Quarter: 2007Q4

REPORT INFORMATION
  Report Type: 
  Country: None (occurrence: None)
  Receive Date: 20071012
  Receipt Date: 20070810
  Transmission Date: 20080405
  Serious: Yes (Hospitalization)
  Sender: FDA-Public Use
  Company Number: US-2007-029901

PATIENT
  Age: 18 Year
  Sex: Female
  Weight: 59.4 kg

DRUGS (1)
  1. YAZ [Suspect]
     Indication: CONTRACEPTION
     Dosage: 1 TAB(S), 1X/DAY, ORAL
     Route: 048
     Dates: start: 20070702, end: 20070720

REACTIONS (2)
  - ANXIETY [None]
  - PULMONARY EMBOLISM [None]
